FAERS Safety Report 19843266 (Version 3)
Quarter: 2021Q4

REPORT INFORMATION
  Report Type: Report from Study
  Country: US (occurrence: US)
  Receive Date: 20210917
  Receipt Date: 20211018
  Transmission Date: 20220304
  Serious: Yes (Death, Hospitalization, Other)
  Sender: FDA-Public Use
  Company Number: US-TAKEDA-2021TUS057606

PATIENT
  Age: 79 Year
  Sex: Female

DRUGS (1)
  1. VEDOLIZUMAB [Suspect]
     Active Substance: VEDOLIZUMAB
     Indication: Crohn^s disease
     Dosage: 300 MILLIGRAM
     Route: 042

REACTIONS (2)
  - Death [Fatal]
  - Illness [Unknown]

NARRATIVE: CASE EVENT DATE: 20210814
